FAERS Safety Report 5289658-5 (Version None)
Quarter: 2007Q2

REPORT INFORMATION
  Report Type: 
  Country: None (occurrence: None)
  Receive Date: 20070406
  Receipt Date: 20070330
  Transmission Date: 20071010
  Serious: Yes (Hospitalization)
  Sender: FDA-Public Use
  Company Number: 2007AP01959

PATIENT
  Age: 59 Year
  Sex: Female

DRUGS (8)
  1. CRESTOR [Suspect]
     Route: 048
     Dates: start: 20070307, end: 20070326
  2. SELBEX [Concomitant]
     Route: 048
  3. CONIEL [Concomitant]
     Route: 048
  4. BLOPRESS [Concomitant]
     Route: 048
  5. ASPIRIN [Concomitant]
     Route: 048
  6. GLIMICRON [Concomitant]
     Route: 048
  7. BASEN [Concomitant]
     Route: 048
  8. MEVALOTIN [Concomitant]
     Dates: end: 20070307

REACTIONS (3)
  - ASCITES [None]
  - OEDEMA [None]
  - RENAL DISORDER [None]
